FAERS Safety Report 9738427 (Version 2)
Quarter: 2015Q4

REPORT INFORMATION
  Report Type: Report from Study
  Country: US (occurrence: US)
  Receive Date: 20131208
  Receipt Date: 20151021
  Transmission Date: 20160305
  Serious: Yes (Other)
  Sender: FDA-Public Use
  Company Number: US-ROCHE-1312928

PATIENT
  Sex: Male

DRUGS (7)
  1. ALBUTEROL SULFATE. [Concomitant]
     Active Substance: ALBUTEROL SULFATE
     Dosage: 90MCG/ACUTUATION  USE AS NEEDED
     Route: 055
  2. ASTELIN (UNITED STATES) [Concomitant]
  3. PREDNISONE. [Concomitant]
     Active Substance: PREDNISONE
     Dosage: FOR 7 DAYS
     Route: 065
  4. FLONASE (UNITED STATES) [Concomitant]
  5. ALLEGRA [Concomitant]
     Active Substance: FEXOFENADINE HYDROCHLORIDE
  6. XOLAIR [Suspect]
     Active Substance: OMALIZUMAB
     Indication: ASTHMA
     Route: 058
  7. SINGULAIR [Concomitant]
     Active Substance: MONTELUKAST SODIUM
     Dosage: AT BEDTIME
     Route: 065

REACTIONS (14)
  - Nasal mucosal discolouration [Unknown]
  - Obstructive airways disorder [Unknown]
  - Sinus congestion [Unknown]
  - Nasal turbinate abnormality [Unknown]
  - Hypersensitivity [Unknown]
  - Conjunctivitis allergic [Unknown]
  - Oropharyngeal pain [Recovering/Resolving]
  - Asthma [Unknown]
  - Sinusitis [Recovering/Resolving]
  - Rhinitis allergic [Unknown]
  - Nasal congestion [Unknown]
  - Chest discomfort [Unknown]
  - Upper-airway cough syndrome [Unknown]
  - Nasal septum deviation [Unknown]
